FAERS Safety Report 10188372 (Version 3)
Quarter: 2014Q2

REPORT INFORMATION
  Report Type: Spontaneous
  Country: US (occurrence: None)
  Receive Date: 20140520
  Receipt Date: 20140619
  Transmission Date: 20141212
  Serious: Yes (Hospitalization)
  Sender: FDA-Public Use
  Company Number: AUR-APL-2014-05760

PATIENT
  Age: 73 Year
  Sex: Female
  Weight: 94.7 kg

DRUGS (14)
  1. TRAMADOL HYDROCHLORIDE [Suspect]
     Indication: OSTEOARTHRITIS
     Route: 048
     Dates: start: 2011
  2. FERROUS GLUCONATE [Suspect]
     Indication: SUPPLEMENTATION THERAPY
     Route: 048
     Dates: start: 2000
  3. DICYCLOMINE [Suspect]
     Indication: IRRITABLE BOWEL SYNDROME
     Route: 048
     Dates: start: 201309
  4. TRIAMTERENE (TRIAMTERENE) [Concomitant]
  5. NEXIUM (ESOMEPRAZOLE MAGNESIUM) [Concomitant]
  6. HYDROCHLOROTHIAZIDE (HYDROCHLOROTHIAZIDE) [Concomitant]
  7. RAMIPRIL (RAMIPRIL) [Concomitant]
  8. LOVASTATIN (LOVASTATIN) [Concomitant]
  9. GLIPIZIDE ER (GLIPIZIDE) [Concomitant]
  10. METFORMIN (METFORMIN) [Concomitant]
  11. SEPTRA DS (BACTRIM) [Concomitant]
  12. PREMARIN (ESTROGENS CONJUGATED) [Concomitant]
  13. OASIS TEARS PLUS (REHYDRON) [Concomitant]
  14. DOCUSATE (DOCUSATE) [Concomitant]

REACTIONS (1)
  - Small intestinal obstruction [None]
